FAERS Safety Report 13799954 (Version 1)
Quarter: 2017Q3

REPORT INFORMATION
  Report Type: Spontaneous
  Country: US (occurrence: US)
  Receive Date: 20170727
  Receipt Date: 20170727
  Transmission Date: 20171127
  Serious: No
  Sender: FDA-Public Use
  Company Number: US-JNJFOC-20170518800

PATIENT
  Age: 67 Year
  Sex: Female
  Weight: 63.05 kg

DRUGS (2)
  1. WOMENS ROGAINE UNSCENTED [Suspect]
     Active Substance: MINOXIDIL
     Indication: ALOPECIA
     Dosage: 2 CAPFULS, ABOUT 4 WEEKS
     Route: 061
     Dates: start: 20170420
  2. WOMENS ROGAINE UNSCENTED [Suspect]
     Active Substance: MINOXIDIL
     Indication: TRICHORRHEXIS
     Dosage: 2 CAPFULS, ABOUT 4 WEEKS
     Route: 061
     Dates: start: 20170420

REACTIONS (3)
  - Overdose [Unknown]
  - Off label use [Unknown]
  - Product use in unapproved indication [Unknown]
